FAERS Safety Report 9248826 (Version 2)
Quarter: 2014Q1

REPORT INFORMATION
  Report Type: Spontaneous
  Country: US (occurrence: None)
  Receive Date: 20130305
  Receipt Date: 20140306
  Transmission Date: 20141002
  Serious: Yes (Hospitalization)
  Sender: FDA-Public Use
  Company Number: 163-21880-12101201

PATIENT
  Age: 76 Year
  Sex: Female
  Weight: 145.6 kg

DRUGS (19)
  1. REVLIMID [Suspect]
     Indication: PLASMA CELL MYELOMA
     Dosage: DISCONTINUED; 21 IN 28 D, PO
     Route: 048
     Dates: start: 201209
  2. VELCADE [Concomitant]
  3. LEVAQUIN (LEVOFLOXACIN) (UNKNOWN) [Concomitant]
  4. ASPIRIN (ACETYLSALICYLIC ACID) (ENTERIC-COATED TABLET) [Concomitant]
  5. ATORVASTATIN CALCIUM (ATORVASTATIN CALCIUM) (TABLETS) [Concomitant]
  6. BYSTOLIC (NEBIVOLOL HYDROCHLORIDE) (TABLETS) [Concomitant]
  7. CITRACAL + D MAXIMUM (CITRACAL + D) (TABLETS) [Concomitant]
  8. CLOPIDOGREL (CLOPIDOGREL) (TABLETS) [Concomitant]
  9. ENBREL (ETANERCEPT) (INJECTION) [Concomitant]
  10. FUROSEMIDE (FUROSEMIDE) (40 MILLIGRAM, TABLETS) [Concomitant]
  11. ISOSORBIDE MONONITRATE (ISOSORBIDE MONONITRATE) (TABLETS) [Concomitant]
  12. KLOR-CON M20 (POTASSIUM CHLORIDE) (TABLETS) [Concomitant]
  13. LEVOTHYROID (LEVOTHYROXINE SODIUM) (TABLETS) [Concomitant]
  14. TOVIAZ (PESOTERODINE FUMARATE) (UNKNOWN) [Concomitant]
  15. ULTRAM (TRAMADOL HYDROCHLORIDE) (TABLETS) [Concomitant]
  16. VALTREX (VALACICLOVIR HYDROCHLORIDE) (TABLETS) [Concomitant]
  17. VITAMIN D (ERGOCALCIFEROL) (CAPSULES) [Concomitant]
  18. TYLENOL (PARACETAMOL) (UNKNOWN) [Concomitant]
  19. DEXAMETHASONE [Concomitant]

REACTIONS (3)
  - Dyspnoea [None]
  - Rash [None]
  - Pain [None]
